FAERS Safety Report 14806067 (Version 1)
Quarter: 2018Q1

REPORT INFORMATION
  Report Type: Spontaneous
  Country: US (occurrence: US)
  Receive Date: 20180331
  Receipt Date: 20180331
  Transmission Date: 20180509
  Serious: Yes (Other)
  Sender: FDA-Public Use
  Company Number: None

PATIENT
  Age: 62 Year
  Sex: Female
  Weight: 67.5 kg

DRUGS (2)
  1. PROLIA [Suspect]
     Active Substance: DENOSUMAB
     Dosage: QUANTITY:1 INJECTION(S);OTHER FREQUENCY:EVERY 6 MONTHS;OTHER ROUTE:INJECTED INTO ARM?
     Dates: start: 20180112
  2. MULTI VITAMIN [Concomitant]
     Active Substance: VITAMINS

REACTIONS (3)
  - Sensitivity of teeth [None]
  - Toothache [None]
  - Bruxism [None]

NARRATIVE: CASE EVENT DATE: 20180321
